FAERS Safety Report 22267333 (Version 1)
Quarter: 2023Q2

REPORT INFORMATION
  Report Type: Other
  Country: None (occurrence: TW)
  Receive Date: 20230428
  Receipt Date: 20230428
  Transmission Date: 20230721
  Serious: Yes (Life-Threatening)
  Sender: FDA-Public Use
  Company Number: TW-B.Braun Medical Inc.-2140925

PATIENT
  Age: 30 Year
  Sex: Female

DRUGS (4)
  1. MANNITOL [Suspect]
     Active Substance: MANNITOL
     Indication: Brain oedema
  2. PREDNISOLONE [Concomitant]
     Active Substance: PREDNISOLONE
  3. TACROLIMUS [Concomitant]
     Active Substance: TACROLIMUS
  4. FENTANYL [Suspect]
     Active Substance: FENTANYL

REACTIONS (1)
  - Drug ineffective [Unknown]
